FAERS Safety Report 12818509 (Version 6)
Quarter: 2017Q1

REPORT INFORMATION
  Report Type: Report from Study
  Country: JP (occurrence: JP)
  Receive Date: 20161006
  Receipt Date: 20170221
  Transmission Date: 20170428
  Serious: Yes (Life-Threatening)
  Sender: FDA-Public Use
  Company Number: PHJP2016JP028051

PATIENT
  Age: 75 Year
  Sex: Female
  Weight: 46.8 kg

DRUGS (2)
  1. COSENTYX [Suspect]
     Active Substance: SECUKINUMAB
     Dosage: 300 MG, QMO
     Route: 058
     Dates: start: 20160720, end: 20160817
  2. COSENTYX [Suspect]
     Active Substance: SECUKINUMAB
     Indication: PSORIATIC ARTHROPATHY
     Dosage: 300 MG, QW
     Route: 058
     Dates: start: 20160524, end: 20160622

REACTIONS (6)
  - Ovarian cancer [Not Recovered/Not Resolved]
  - Malignant ascites [Not Recovered/Not Resolved]
  - Ascites [Unknown]
  - C-reactive protein increased [Unknown]
  - Abdominal distension [Unknown]
  - Cell marker increased [Not Recovered/Not Resolved]

NARRATIVE: CASE EVENT DATE: 201609
